FAERS Safety Report 23874710 (Version 1)
Quarter: 2024Q2

REPORT INFORMATION
  Report Type: Spontaneous
  Country: US (occurrence: US)
  Receive Date: 20240520
  Receipt Date: 20240520
  Transmission Date: 20240716
  Serious: No
  Sender: FDA-Public Use
  Company Number: US-CIPLA LTD.-2024US00288

PATIENT

DRUGS (9)
  1. ALBUTEROL [Suspect]
     Active Substance: ALBUTEROL
     Indication: Asthma
     Dosage: 0.18 MCG, (2 PUFFS), (EVERY 4 HOURS AS NEEDED)
     Route: 065
     Dates: start: 20240103
  2. SIMVASTATIN [Concomitant]
     Active Substance: SIMVASTATIN
     Indication: Blood cholesterol
     Dosage: 40 MILLIGRAM, QD
     Route: 065
     Dates: start: 1982
  3. LIOTHYRONINE SODIUM [Concomitant]
     Active Substance: LIOTHYRONINE SODIUM
     Indication: Hypothyroidism
     Dosage: 15 MCG, QD, (STARTED MANY YEARS)
     Route: 065
  4. LEVOTHYROXINE [Concomitant]
     Active Substance: LEVOTHYROXINE\LEVOTHYROXINE SODIUM
     Indication: Hypothyroidism
     Dosage: 75 MCG, QD, (STARTED MANY YEARS)
     Route: 065
  5. SERTRALINE HYDROCHLORIDE [Concomitant]
     Active Substance: SERTRALINE HYDROCHLORIDE
     Indication: Anxiety
     Dosage: 75 MILLIGRAM, QD, (STARTED MANY YEARS)
     Route: 065
  6. CLONAZEPAM [Concomitant]
     Active Substance: CLONAZEPAM
     Indication: Insomnia
     Dosage: 0.5 MILLIGRAM, (COUPLE A MONTH), (STARTED MANY YEARS NOT SPECIFIED)
     Route: 065
  7. MINOXIDIL [Concomitant]
     Active Substance: MINOXIDIL
     Indication: Alopecia
     Dosage: 1 DOSAGE FORM, QD
     Route: 065
     Dates: start: 2022
  8. GANCICLOVIR [Concomitant]
     Active Substance: GANCICLOVIR
     Indication: Oral herpes
     Dosage: 25 MILLIGRAM, PRN, (, BUT SHE HAVEN^T USED IT IN LONG TIME)
     Route: 065
  9. MENTHOL [Concomitant]
     Active Substance: MENTHOL
     Indication: Cough
     Dosage: UNK, PRN
     Route: 065

REACTIONS (5)
  - Accidental exposure to product [Unknown]
  - Drug ineffective [Unknown]
  - Product taste abnormal [Unknown]
  - Device mechanical issue [Unknown]
  - Wrong technique in device usage process [Unknown]

NARRATIVE: CASE EVENT DATE: 20240101
